FAERS Safety Report 9405340 (Version 2)
Quarter: 2013Q3

REPORT INFORMATION
  Report Type: Spontaneous
  Country: FR (occurrence: None)
  Receive Date: 20130703
  Receipt Date: 20130708
  Transmission Date: 20140515
  Serious: Yes (Other)
  Sender: FDA-Public Use
  Company Number: 2013036634

PATIENT
  Age: 29 Year
  Sex: Female

DRUGS (1)
  1. PRIVIGEN [Suspect]
     Indication: ALLOIMMUNISATION
     Dosage: 1G/KG ON 2 DAYS
     Route: 042
     Dates: start: 20130515, end: 20130515

REACTIONS (4)
  - Rash [None]
  - Exposure during pregnancy [None]
  - Rash [None]
  - Infusion related reaction [None]
